FAERS Safety Report 6707910-0 (Version None)
Quarter: 2010Q2

REPORT INFORMATION
  Report Type: 
  Country: None (occurrence: None)
  Receive Date: 20100503
  Receipt Date: 20091019
  Transmission Date: 20101027
  Serious: No
  Sender: FDA-Public Use
  Company Number: US-ASTRAZENECA-2009SE20955

PATIENT
  Age: 58 Year
  Sex: Male
  Weight: 74.8 kg

DRUGS (4)
  1. NEXIUM [Suspect]
     Indication: GASTROOESOPHAGEAL REFLUX DISEASE
     Route: 048
     Dates: start: 20010101
  2. ATIVAN [Concomitant]
     Route: 048
  3. ASPIRIN [Concomitant]
     Route: 048
  4. FLONASE [Concomitant]
     Route: 045

REACTIONS (3)
  - ARTHRALGIA [None]
  - BACK PAIN [None]
  - OSTEOPOROSIS [None]
